FAERS Safety Report 4554592-2 (Version None)
Quarter: 2005Q1

REPORT INFORMATION
  Report Type: 
  Country: None (occurrence: None)
  Receive Date: 20050114
  Receipt Date: 20040624
  Transmission Date: 20050727
  Serious: Yes (Life-Threatening, Hospitalization)
  Sender: FDA-Public Use
  Company Number: GXKR2004US00631

PATIENT
  Age: 37 Year
  Sex: Male

DRUGS (3)
  1. ALPRAZOLAM [Suspect]
     Dosage: 1 MG/KG (BODY WEIGHT), ORAL
     Route: 048
  2. AMLODIPINE [Suspect]
     Dosage: 6.7 MG/KG (BODY WEIGHT), ORAL
     Route: 048
  3. ATENOLOL [Suspect]
     Dosage: 33.3 MG/KG (BODY WEIGHT), ORAL
     Route: 048

REACTIONS (6)
  - ATRIOVENTRICULAR BLOCK COMPLETE [None]
  - DRUG TOXICITY [None]
  - INTENTIONAL MISUSE [None]
  - LETHARGY [None]
  - SHOCK [None]
  - SUICIDE ATTEMPT [None]
